FAERS Safety Report 8822102 (Version 2)
Quarter: 2012Q4

REPORT INFORMATION
  Report Type: Report from Study
  Country: JP (occurrence: JP)
  Receive Date: 20121003
  Receipt Date: 20121025
  Transmission Date: 20130627
  Serious: Yes (Other)
  Sender: FDA-Public Use
  Company Number: JP-009507513-1209JPN009974

PATIENT
  Age: 50 Year
  Sex: Male
  Weight: 69 kg

DRUGS (5)
  1. PEGINTRON [Suspect]
     Indication: HEPATITIS C
     Dosage: 1.5 Microgram per kilogram, qw
     Route: 058
     Dates: start: 20120306
  2. PEGINTRON [Suspect]
     Dosage: UNK
     Route: 058
     Dates: end: 20120603
  3. REBETOL [Suspect]
     Indication: HEPATITIS C
     Dosage: 800 mg, qd
     Route: 048
     Dates: start: 20120306
  4. REBETOL [Suspect]
     Dosage: UNK
     Route: 048
     Dates: end: 20120529
  5. TELAVIC [Suspect]
     Indication: HEPATITIS C
     Dosage: 2250 mg, qd
     Route: 048
     Dates: start: 20120306

REACTIONS (1)
  - Hypoaesthesia [Recovered/Resolved]
